FAERS Safety Report 9099308 (Version 1)
Quarter: 2013Q1

REPORT INFORMATION
  Report Type: Spontaneous
  Country: US (occurrence: US)
  Receive Date: 20130213
  Receipt Date: 20130213
  Transmission Date: 20140127
  Serious: Yes (Death, Hospitalization, Other)
  Sender: FDA-Public Use
  Company Number: US-ELI_LILLY_AND_COMPANY-US201302001697

PATIENT
  Age: 19 Year
  Sex: Female

DRUGS (2)
  1. FLUOXETINE HYDROCHLORIDE [Suspect]
     Dosage: 40 MG, QD
  2. ALPRAZOLAM [Concomitant]
     Dosage: 3 MG, BID

REACTIONS (12)
  - Completed suicide [Fatal]
  - Pulse absent [None]
  - Apnoea [None]
  - Coma [None]
  - Pupil fixed [None]
  - Drug screen positive [None]
  - Hypoxic-ischaemic encephalopathy [None]
  - Brain oedema [None]
  - Brain death [None]
  - Toxicity to various agents [None]
  - Overdose [None]
  - Cardio-respiratory arrest [None]
